FAERS Safety Report 5239548-9 (Version None)
Quarter: 2007Q1

REPORT INFORMATION
  Report Type: 
  Country: None (occurrence: None)
  Receive Date: 20070209
  Receipt Date: 20070129
  Transmission Date: 20070707
  Serious: Yes (Life-Threatening, Disabling, Other)
  Sender: FDA-Public Use
  Company Number: 2007AP000118

PATIENT
  Age: 25 Year
  Sex: Male

DRUGS (3)
  1. PAROXETINE HCL [Suspect]
     Dosage: SEE IMAGE
     Route: 048
     Dates: start: 20020501, end: 20031001
  2. ZOPICLONE (ZOPICLONE) [Suspect]
     Dosage: DOSE, FORM, ROUTE AND FREQUENCY; PO; QD
     Route: 048
     Dates: start: 20020901, end: 20030901
  3. ALCOHOL (ETHANOL) [Concomitant]

REACTIONS (11)
  - AGGRESSION [None]
  - ALCOHOL USE [None]
  - AMNESIA [None]
  - HEADACHE [None]
  - HOMICIDE [None]
  - HYPERHIDROSIS [None]
  - INCORRECT DOSE ADMINISTERED [None]
  - NAUSEA [None]
  - NIGHTMARE [None]
  - SLEEP WALKING [None]
  - TREMOR [None]
